FAERS Safety Report 5442114-3 (Version None)
Quarter: 2007Q3

REPORT INFORMATION
  Report Type: 
  Country: None (occurrence: None)
  Receive Date: 20070904
  Receipt Date: 20070822
  Transmission Date: 20080115
  Serious: Yes (Other)
  Sender: FDA-Public Use
  Company Number: GB-ROCHE-512978

PATIENT
  Age: 60 Year
  Sex: Female
  Weight: 104 kg

DRUGS (4)
  1. ORLISTAT [Suspect]
     Indication: OBESITY
     Route: 048
     Dates: start: 20070603, end: 20070815
  2. LACTULOSE [Concomitant]
     Indication: CONSTIPATION
     Dosage: DRUG NAME REPORTED AS LACTALOSE.
     Route: 048
     Dates: start: 20070815
  3. PARACETAMOL [Concomitant]
     Route: 048
     Dates: start: 20070815
  4. RAMIPRIL [Concomitant]
     Indication: HYPERTENSION
     Dosage: DOSAGE REPORTED AS 5 GMS ODS.
     Route: 048

REACTIONS (1)
  - GENITAL DISORDER FEMALE [None]
